FAERS Safety Report 4926437-X (Version None)
Quarter: 2006Q1

REPORT INFORMATION
  Report Type: 
  Country: None (occurrence: None)
  Receive Date: 20060228
  Receipt Date: 20051121
  Transmission Date: 20060701
  Serious: No
  Sender: FDA-Public Use
  Company Number: US-GLAXOSMITHKLINE-A0583483A

PATIENT
  Age: 27 Year
  Sex: Male

DRUGS (2)
  1. LAMICTAL [Suspect]
     Indication: DRUG USE FOR UNKNOWN INDICATION
     Dosage: 1TAB TWICE PER DAY
     Route: 048
  2. PROPECIA [Concomitant]

REACTIONS (1)
  - DRUG PRESCRIBING ERROR [None]
